FAERS Safety Report 23848783 (Version 1)
Quarter: 2024Q2

REPORT INFORMATION
  Report Type: Spontaneous
  Country: US (occurrence: None)
  Receive Date: 20240510
  Receipt Date: 20240510
  Transmission Date: 20240716
  Serious: Yes (Hospitalization)
  Sender: FDA-Public Use
  Company Number: None

PATIENT
  Age: 77 Year
  Sex: Male
  Weight: 83.1 kg

DRUGS (3)
  1. ERTAPENEM [Suspect]
     Active Substance: ERTAPENEM
     Dates: start: 20240420, end: 20240422
  2. DEPAKOTE [Suspect]
     Active Substance: DIVALPROEX SODIUM
  3. DEVICE [Suspect]
     Active Substance: DEVICE

REACTIONS (6)
  - Seizure [None]
  - Enterobacter infection [None]
  - Device related infection [None]
  - Drug interaction [None]
  - Creatinine renal clearance decreased [None]
  - Drug hypersensitivity [None]

NARRATIVE: CASE EVENT DATE: 20240424
